FAERS Safety Report 8963369 (Version 6)
Quarter: 2015Q2

REPORT INFORMATION
  Report Type: Report from Study
  Country: US (occurrence: US)
  Receive Date: 20121213
  Receipt Date: 20150626
  Transmission Date: 20150821
  Serious: Yes (Hospitalization, Other)
  Sender: FDA-Public Use
  Company Number: US-ACTELION-A-NJ2012-76050

PATIENT
  Age: 76 Year
  Sex: Female

DRUGS (3)
  1. TRACLEER [Suspect]
     Active Substance: BOSENTAN\BOSENTAN MONOHYDRATE
     Indication: PULMONARY ARTERIAL HYPERTENSION
     Dosage: UNK
     Route: 048
     Dates: start: 201006, end: 20150323
  2. COUMADIN [Concomitant]
     Active Substance: WARFARIN SODIUM
  3. XARELTO [Concomitant]
     Active Substance: RIVAROXABAN

REACTIONS (5)
  - Pain in extremity [Unknown]
  - Pneumonia [Recovering/Resolving]
  - Joint swelling [Recovering/Resolving]
  - Lung neoplasm malignant [Unknown]
  - Malaise [Unknown]

NARRATIVE: CASE EVENT DATE: 20121111
